FAERS Safety Report 5958803-8 (Version None)
Quarter: 2008Q4

REPORT INFORMATION
  Report Type: 
  Country: None (occurrence: None)
  Receive Date: 20081117
  Receipt Date: 20081031
  Transmission Date: 20090506
  Serious: Yes (Hospitalization)
  Sender: FDA-Public Use
  Company Number: 8039095

PATIENT

DRUGS (3)
  1. CIMZIA [Suspect]
     Indication: CROHN'S DISEASE
     Dosage: 400 MG 1/2W SC
     Route: 058
  2. MERCAPTOPURINE [Concomitant]
  3. PREDNISONE TAB [Concomitant]

REACTIONS (1)
  - CLOSTRIDIAL INFECTION [None]
